FAERS Safety Report 12860011 (Version 1)
Quarter: 2016Q4

REPORT INFORMATION
  Report Type: Spontaneous
  Country: US (occurrence: US)
  Receive Date: 20161006
  Receipt Date: 20161006
  Transmission Date: 20170207
  Serious: No
  Sender: FDA-Public Use
  Company Number: None

PATIENT
  Age: 72 Year
  Sex: Female

DRUGS (1)
  1. LEFLUNOMIDE WINTHDROP [Suspect]
     Active Substance: LEFLUNOMIDE
     Dosage: 1 PILL ONCE DAILY MOUTH
     Route: 048
     Dates: start: 20160821, end: 20160910

REACTIONS (1)
  - Blood glucose increased [None]

NARRATIVE: CASE EVENT DATE: 20160821
